FAERS Safety Report 7395765-3 (Version None)
Quarter: 2011Q2

REPORT INFORMATION
  Report Type: 
  Country: None (occurrence: None)
  Receive Date: 20110405
  Receipt Date: 20110328
  Transmission Date: 20111010
  Serious: Yes (Death, Hospitalization)
  Sender: FDA-Public Use
  Company Number: US-GILEAD-2011-0037443

PATIENT
  Sex: Male

DRUGS (4)
  1. REVATIO [Concomitant]
  2. REMODULIN [Concomitant]
  3. LETAIRIS [Suspect]
     Indication: PULMONARY HYPERTENSION
     Route: 048
     Dates: start: 20110216
  4. LETAIRIS [Suspect]
     Indication: RIGHT VENTRICULAR FAILURE

REACTIONS (3)
  - RENAL DISORDER [None]
  - SCLERODERMA [None]
  - FLUID RETENTION [None]
